FAERS Safety Report 4342797-5 (Version None)
Quarter: 2004Q2

REPORT INFORMATION
  Report Type: 
  Country: None (occurrence: None)
  Receive Date: 20040419
  Receipt Date: 20040419
  Transmission Date: 20050107
  Serious: Yes (Hospitalization)
  Sender: FDA-Public Use
  Company Number: None

PATIENT
  Sex: Female
  Weight: 40.8 kg

DRUGS (2)
  1. VANCOMYCIN [Suspect]
     Indication: CELLULITIS
     Dosage: 1GM X 1 4/8/4 + 4/14/4
     Dates: start: 20040408
  2. VANCOMYCIN [Suspect]
     Indication: CELLULITIS
     Dosage: 1GM X 1 4/8/4 + 4/14/4
     Dates: start: 20040414

REACTIONS (1)
  - PRURITUS [None]
